FAERS Safety Report 6817906-6 (Version None)
Quarter: 2010Q3

REPORT INFORMATION
  Report Type: 
  Country: None (occurrence: None)
  Receive Date: 20100706
  Receipt Date: 20100621
  Transmission Date: 20110219
  Serious: Yes (Hospitalization)
  Sender: FDA-Public Use
  Company Number: JP-WATSON-2010-08657

PATIENT
  Age: 53 Year
  Sex: Male

DRUGS (2)
  1. PREDNISOLONE (WATSON LABORATORIES) [Suspect]
     Indication: AORTIC ANEURYSM
     Dosage: 50 MG, DAILY
  2. PREDNISOLONE (WATSON LABORATORIES) [Suspect]
     Dosage: 30 MG, DAILY, INCREASED TO 50MG

REACTIONS (1)
  - AORTIC ANEURYSM RUPTURE [None]
